FAERS Safety Report 15899686 (Version 1)
Quarter: 2019Q1

REPORT INFORMATION
  Report Type: Spontaneous
  Country: US (occurrence: US)
  Receive Date: 20190201
  Receipt Date: 20190201
  Transmission Date: 20190417
  Serious: No
  Sender: FDA-Public Use
  Company Number: US-PFIZER INC-2019047469

PATIENT
  Sex: Female

DRUGS (2)
  1. LYRICA [Suspect]
     Active Substance: PREGABALIN
     Dosage: 1 DF, UNK
  2. LYRICA [Suspect]
     Active Substance: PREGABALIN
     Dosage: 2 DF, UNK (2 CAPSULES)

REACTIONS (2)
  - Intentional product use issue [Unknown]
  - Somnolence [Unknown]
